FAERS Safety Report 10683486 (Version 1)
Quarter: 2014Q4

REPORT INFORMATION
  Report Type: Spontaneous
  Country: GB (occurrence: GB)
  Receive Date: 20141230
  Receipt Date: 20141230
  Transmission Date: 20150529
  Serious: Yes (Life-Threatening)
  Sender: FDA-Public Use
  Company Number: GB-ACTAVIS-2014-27762

PATIENT
  Age: 31 Year
  Sex: Female
  Weight: 110 kg

DRUGS (1)
  1. DICLOFENAC (UNKNOWN) [Suspect]
     Active Substance: DICLOFENAC SODIUM
     Indication: BACK PAIN
     Dosage: 50MG, PRN. THREE TIMES DAILY AS NECESSARY
     Route: 048
     Dates: start: 20120901, end: 20130915

REACTIONS (2)
  - Hepatitis [Not Recovered/Not Resolved]
  - Aplastic anaemia [Not Recovered/Not Resolved]
